FAERS Safety Report 5630944-4 (Version None)
Quarter: 2008Q1

REPORT INFORMATION
  Report Type: 
  Country: None (occurrence: None)
  Receive Date: 20080219
  Receipt Date: 20080208
  Transmission Date: 20080703
  Serious: Yes (Life-Threatening, Hospitalization)
  Sender: FDA-Public Use
  Company Number: JP-AVENTIS-200810798GDDC

PATIENT
  Age: 77 Year
  Sex: Male

DRUGS (27)
  1. CEFIXIME CHEWABLE [Suspect]
     Indication: CHRONIC OBSTRUCTIVE PULMONARY DISEASE
     Route: 048
     Dates: start: 20040803, end: 20040814
  2. ENOXAPARIN SODIUM [Suspect]
     Indication: THROMBOSIS PROPHYLAXIS
     Dosage: DOSE: UNK
     Route: 058
     Dates: start: 20040728, end: 20040806
  3. URBASON [Suspect]
     Indication: CHRONIC OBSTRUCTIVE PULMONARY DISEASE
     Route: 048
     Dates: start: 20040708, end: 20040805
  4. FORMOTEROL [Suspect]
     Indication: CHRONIC OBSTRUCTIVE PULMONARY DISEASE
     Dosage: DOSE: 1 DF
     Route: 055
     Dates: start: 20040726, end: 20040814
  5. NORVASC [Suspect]
     Indication: HYPERTENSION
     Route: 048
     Dates: start: 20040717, end: 20040809
  6. LISINOPRIL AND HYDROCHLOROTHIAZIDE [Suspect]
     Indication: HYPERTENSION
     Dosage: DOSE: 1 DF
     Route: 048
     Dates: start: 20040717, end: 20040809
  7. NEBILET [Suspect]
     Indication: TACHYCARDIA
     Route: 048
     Dates: start: 20040714, end: 20040814
  8. LOPIRIN [Suspect]
     Indication: HYPERTENSION
     Route: 048
     Dates: start: 20040714, end: 20040101
  9. LOPIRIN [Suspect]
     Route: 048
     Dates: start: 20040101, end: 20040814
  10. PULMICORT [Suspect]
     Dosage: DOSE: 1 DF
     Route: 055
     Dates: start: 20040717, end: 20040814
  11. PANTOZOL                           /01263202/ [Suspect]
     Indication: PROPHYLAXIS AGAINST GASTROINTESTINAL ULCER
     Dosage: DOSE: UNK
     Route: 048
     Dates: start: 20040708, end: 20040814
  12. ASPIRIN [Suspect]
     Indication: THROMBOSIS PROPHYLAXIS
     Dates: start: 20040717, end: 20040804
  13. ACETYLCYSTEINE [Suspect]
     Indication: COUGH
     Route: 048
     Dates: start: 20040728, end: 20040814
  14. PARACODIN                          /00063002/ [Suspect]
     Indication: COUGH
     Route: 048
     Dates: start: 20040729, end: 20040807
  15. TORSEMIDE [Suspect]
     Indication: CARDIAC FAILURE
     Route: 048
     Dates: start: 20040730, end: 20040809
  16. DICODID                            /00060002/ [Suspect]
     Indication: CHRONIC OBSTRUCTIVE PULMONARY DISEASE
     Dosage: DOSE: 0.5 DF
     Route: 058
     Dates: start: 20040803, end: 20040803
  17. BERODUAL [Concomitant]
     Dosage: DOSE: UNK
     Dates: end: 20040725
  18. TRAMAL [Concomitant]
     Dates: start: 20040728, end: 20040728
  19. POTASSIUM CHLORIDE [Concomitant]
     Dates: start: 20040804, end: 20040809
  20. ALDACTONE [Concomitant]
     Dates: start: 20040806, end: 20040809
  21. AMLODIPINE [Concomitant]
     Dates: start: 20040810, end: 20040814
  22. ATROVENT [Concomitant]
     Dates: start: 20040810, end: 20040814
  23. BRONCHOSPRAY NOVO [Concomitant]
     Dates: start: 20040810, end: 20040814
  24. TORSEMIDE [Concomitant]
     Dates: start: 20040810, end: 20040814
  25. SPIRONOLACTONE [Concomitant]
     Dates: start: 20040810, end: 20040814
  26. LISIPLUS [Concomitant]
     Dates: start: 20040810, end: 20040814
  27. KALITRANS                          /00242801/ [Concomitant]
     Dates: start: 20040810

REACTIONS (2)
  - STEVENS-JOHNSON SYNDROME [None]
  - TOXIC EPIDERMAL NECROLYSIS [None]
